FAERS Safety Report 14313504 (Version 1)
Quarter: 2017Q4

REPORT INFORMATION
  Report Type: Spontaneous
  Country: US (occurrence: US)
  Receive Date: 20171221
  Receipt Date: 20171221
  Transmission Date: 20180321
  Serious: Yes (Hospitalization, Other)
  Sender: FDA-Public Use
  Company Number: US-GLAXOSMITHKLINE-US2017193042

PATIENT
  Age: 72 Year
  Sex: Female

DRUGS (15)
  1. BUPROPION HYDROBROMIDE [Concomitant]
     Active Substance: BUPROPION HYDROBROMIDE
  2. BAYER ASPIRIN [Concomitant]
     Active Substance: ASPIRIN
  3. CALCIUM CITRATE [Concomitant]
     Active Substance: CALCIUM CITRATE
  4. MONTELUKAST [Concomitant]
     Active Substance: MONTELUKAST SODIUM
  5. OMEPRAZOLE. [Concomitant]
     Active Substance: OMEPRAZOLE
  6. FLUTICASONE PROPIONATE. [Suspect]
     Active Substance: FLUTICASONE PROPIONATE
     Indication: PRODUCT USED FOR UNKNOWN INDICATION
     Dosage: UNK UNK, U
     Dates: start: 2016, end: 20171213
  7. KRILL OIL [Concomitant]
     Active Substance: DIETARY SUPPLEMENT
  8. VENLAFAXINE [Concomitant]
     Active Substance: VENLAFAXINE HYDROCHLORIDE
  9. ADVAIR DISKUS [Suspect]
     Active Substance: FLUTICASONE PROPIONATE\SALMETEROL XINAFOATE
     Indication: CHRONIC OBSTRUCTIVE PULMONARY DISEASE
     Dosage: 1 PUFF(S), BID
     Route: 055
  10. VITAMIN B12 [Concomitant]
     Active Substance: CYANOCOBALAMIN
  11. SOLU-MEDROL [Suspect]
     Active Substance: METHYLPREDNISOLONE SODIUM SUCCINATE
     Indication: NASOPHARYNGITIS
     Dosage: UNK UNK, U
     Dates: start: 2016
  12. MOTRIN [Concomitant]
     Active Substance: IBUPROFEN
  13. MUCINEX [Concomitant]
     Active Substance: GUAIFENESIN
  14. BENZONATATE. [Concomitant]
     Active Substance: BENZONATATE
  15. FISH OIL [Concomitant]
     Active Substance: FISH OIL

REACTIONS (12)
  - Drug dose omission [Unknown]
  - Vision blurred [Recovered/Resolved]
  - Cough [Recovered/Resolved]
  - Nasopharyngitis [Recovered/Resolved]
  - Retinal tear [Unknown]
  - Feeding disorder [Unknown]
  - Asthenia [Unknown]
  - Epistaxis [Recovered/Resolved]
  - Cataract operation [Unknown]
  - Diplopia [Recovered/Resolved]
  - Aspiration [Unknown]
  - Corrective lens user [Unknown]

NARRATIVE: CASE EVENT DATE: 2016
